FAERS Safety Report 5281553-0 (Version None)
Quarter: 2007Q1

REPORT INFORMATION
  Report Type: 
  Country: None (occurrence: None)
  Receive Date: 20070323
  Receipt Date: 20070323
  Transmission Date: 20070707
  Serious: Yes (Disabling)
  Sender: FDA-Public Use
  Company Number: None

PATIENT
  Age: 76 Year
  Sex: Female

DRUGS (9)
  1. OMNISCAN [Suspect]
     Indication: VERTEBRAL ARTERY STENOSIS
     Dosage: 40 ML ONCE IV
     Route: 042
     Dates: start: 20061124
  2. NEPHROCAPS [Concomitant]
  3. PLAVIX [Concomitant]
  4. DARVOCET [Concomitant]
  5. IMDUR [Concomitant]
  6. VYTORIL [Concomitant]
  7. POTASSIUM CHLORIDE [Concomitant]
  8. PHOSLO [Concomitant]
  9. ARANESP [Concomitant]

REACTIONS (1)
  - NEPHROGENIC FIBROSING DERMOPATHY [None]
